FAERS Safety Report 5086958-9 (Version None)
Quarter: 2006Q3

REPORT INFORMATION
  Report Type: 
  Country: None (occurrence: None)
  Receive Date: 20060821
  Receipt Date: 20060811
  Transmission Date: 20061208
  Serious: Yes (Death)
  Sender: FDA-Public Use
  Company Number: 2006-07-0117

PATIENT
  Age: 58 Year
  Sex: Male
  Weight: 80 kg

DRUGS (6)
  1. PEG-INTRON [Suspect]
     Indication: HEPATITIS C
     Dosage: 100 UG QWK SUBCUTANEOUS
     Route: 058
     Dates: start: 20060407, end: 20060503
  2. RIBAVIRIN [Suspect]
     Indication: HEPATITIS C
     Dosage: 1000 MG QD ORAL
     Route: 048
     Dates: start: 20060407, end: 20060503
  3. LASIX [Concomitant]
  4. ALDACTONE [Concomitant]
  5. GLYBURIDE [Concomitant]
  6. PANTOPRAZOLE SODIUM [Concomitant]

REACTIONS (5)
  - CARDIAC DISORDER [None]
  - CEREBROVASCULAR ACCIDENT [None]
  - DRUG INTOLERANCE [None]
  - HEPATIC ISCHAEMIA [None]
  - HEPATITIS ACUTE [None]
